FAERS Safety Report 10048741 (Version 2)
Quarter: 2014Q2

REPORT INFORMATION
  Report Type: Spontaneous
  Country: IT (occurrence: IT)
  Receive Date: 20140331
  Receipt Date: 20140417
  Transmission Date: 20141212
  Serious: Yes (Other)
  Sender: FDA-Public Use
  Company Number: IT-PFIZER INC-2014089580

PATIENT
  Age: 56 Year
  Sex: Male

DRUGS (8)
  1. TORVAST [Suspect]
     Dosage: 20 MG, DAILY
     Route: 048
     Dates: start: 20110722, end: 20140219
  2. ESKIM [Concomitant]
  3. HUMALOG [Concomitant]
  4. PLAVIX [Concomitant]
  5. NORVASC [Concomitant]
  6. TRIATEC [Concomitant]
  7. PANTORC [Concomitant]
  8. EZETROL [Concomitant]

REACTIONS (2)
  - Blood creatine phosphokinase increased [Recovering/Resolving]
  - Myasthenia gravis [Recovering/Resolving]
